FAERS Safety Report 8591031-9 (Version None)
Quarter: 2012Q3

REPORT INFORMATION
  Report Type: 
  Country: None (occurrence: None)
  Receive Date: 20120813
  Receipt Date: 20120731
  Transmission Date: 20120928
  Serious: Yes (Hospitalization)
  Sender: FDA-Public Use
  Company Number: JP-FRI-1000037660

PATIENT
  Age: 85 Year
  Sex: Female

DRUGS (7)
  1. MEMANTINE HCL [Suspect]
     Indication: DEMENTIA
     Dosage: 5 MG
     Route: 048
     Dates: start: 20120605, end: 20120611
  2. AMANTADINE HCL [Concomitant]
  3. MEMANTINE HCL [Suspect]
     Dosage: 10 MG
     Route: 048
     Dates: start: 20120612, end: 20120618
  4. MEMANTINE HCL [Suspect]
     Dosage: 20 MG
     Route: 048
     Dates: start: 20120626, end: 20120731
  5. MEMANTINE HCL [Suspect]
     Dosage: 15 MG
     Route: 048
     Dates: start: 20120619, end: 20120625
  6. VERAPAMIL HCL [Concomitant]
  7. CIBENOL [Concomitant]

REACTIONS (3)
  - DECREASED APPETITE [None]
  - DECREASED ACTIVITY [None]
  - DEHYDRATION [None]
